FAERS Safety Report 4627733-6 (Version None)
Quarter: 2005Q2

REPORT INFORMATION
  Report Type: 
  Country: None (occurrence: None)
  Receive Date: 20050401
  Receipt Date: 20050322
  Transmission Date: 20051028
  Serious: Yes (Other)
  Sender: FDA-Public Use
  Company Number: HQWYE244622MAR05

PATIENT
  Age: 69 Year
  Sex: Male

DRUGS (1)
  1. EFFEXOR [Suspect]

REACTIONS (5)
  - CSF VIRUS IDENTIFIED [None]
  - DRUG RASH WITH EOSINOPHILIA AND SYSTEMIC SYMPTOMS [None]
  - ENCEPHALITIS POST VARICELLA [None]
  - HERPES ZOSTER [None]
  - TOXIC SKIN ERUPTION [None]
